FAERS Safety Report 9438040 (Version 1)
Quarter: 2013Q3

REPORT INFORMATION
  Report Type: Spontaneous
  Country: US (occurrence: US)
  Receive Date: 20130802
  Receipt Date: 20130802
  Transmission Date: 20140515
  Serious: Yes (Hospitalization)
  Sender: FDA-Public Use
  Company Number: US-BAYER-2013-092334

PATIENT
  Age: 30 Year
  Sex: Female
  Weight: 115.65 kg

DRUGS (14)
  1. YASMIN [Suspect]
  2. OCELLA [Suspect]
  3. ATENOLOL [Concomitant]
  4. SIMVASTATIN [Concomitant]
  5. HYDROCODONE [Concomitant]
  6. GABAPENTIN [Concomitant]
     Indication: HEADACHE
  7. PRILOSEC [Concomitant]
  8. OXYCODONE [Concomitant]
  9. METFORMIN [Concomitant]
  10. DILAUDID [Concomitant]
  11. NEURONTIN [Concomitant]
  12. VICODIN [Concomitant]
  13. PHENERGAN [Concomitant]
  14. ZOCOR [Concomitant]

REACTIONS (2)
  - Cerebral infarction [None]
  - Cerebrovascular accident [None]
